FAERS Safety Report 14011832 (Version 1)
Quarter: 2017Q3

REPORT INFORMATION
  Report Type: Report from Study
  Country: NL (occurrence: NL)
  Receive Date: 20170926
  Receipt Date: 20170926
  Transmission Date: 20171128
  Serious: Yes (Hospitalization)
  Sender: FDA-Public Use
  Company Number: NL-MYLANLABS-2017M1059443

PATIENT
  Age: 34 Year
  Sex: Male

DRUGS (1)
  1. METHYLPHENIDATE. [Suspect]
     Active Substance: METHYLPHENIDATE
     Indication: PRODUCT USED FOR UNKNOWN INDICATION
     Dosage: 4.2MG/KG IMMEDIATE RELEASE
     Route: 048

REACTIONS (13)
  - Insomnia [Unknown]
  - Confusional state [Unknown]
  - Nausea [Unknown]
  - Vomiting [Unknown]
  - Muscle contracture [Unknown]
  - Heart rate increased [Unknown]
  - Toxicity to various agents [Unknown]
  - Respiratory rate increased [Unknown]
  - Apathy [Unknown]
  - Somnolence [Unknown]
  - Tremor [Unknown]
  - Chest pain [Unknown]
  - Agitation [Unknown]
